FAERS Safety Report 10081565 (Version 1)
Quarter: 2014Q2

REPORT INFORMATION
  Report Type: Spontaneous
  Country: CH (occurrence: CH)
  Receive Date: 20140416
  Receipt Date: 20140416
  Transmission Date: 20141212
  Serious: Yes (Hospitalization)
  Sender: FDA-Public Use
  Company Number: CH-BAYER-2014-052540

PATIENT
  Age: 86 Year
  Sex: Female

DRUGS (9)
  1. ASPIRIN CARDIO [Suspect]
     Indication: CORONARY ARTERIAL STENT INSERTION
     Dosage: 100 MG, QD
     Route: 048
     Dates: start: 20130913, end: 20140313
  2. MARCOUMAR [Interacting]
     Indication: DEEP VEIN THROMBOSIS
     Dosage: UNK
     Route: 048
     Dates: start: 201402, end: 20140313
  3. ATORVASTATIN [Interacting]
     Dosage: 10 MG, QD
     Route: 048
  4. BELOC [Concomitant]
  5. EXFORGE HCT [Concomitant]
  6. TOREM [Concomitant]
  7. ACIDUM FOLICUM [Concomitant]
  8. PANTOZOL [Concomitant]
  9. SERESTA [Concomitant]

REACTIONS (4)
  - Gastrointestinal angiodysplasia haemorrhagic [Recovered/Resolved]
  - Abnormal faeces [Recovered/Resolved]
  - Anaemia [Not Recovered/Not Resolved]
  - International normalised ratio increased [Recovered/Resolved]
